FAERS Safety Report 4520709-9 (Version None)
Quarter: 2004Q4

REPORT INFORMATION
  Report Type: 
  Country: None (occurrence: None)
  Receive Date: 20041203
  Receipt Date: 20041108
  Transmission Date: 20050328
  Serious: Yes (Death, Hospitalization)
  Sender: FDA-Public Use
  Company Number: STA-AE-04-MTX-554

PATIENT
  Age: 73 Year
  Sex: Female

DRUGS (11)
  1. RHEUMATREX [Suspect]
     Indication: RHEUMATOID ARTHRITIS
     Dosage: 6 MG 1X PER 1 WK, ORAL
     Route: 048
     Dates: start: 20031018, end: 20031206
  2. RHEUMATREX [Suspect]
     Dosage: 4 MG 1XD PER 1 WK, ORAL
     Route: 048
     Dates: start: 20040207, end: 20040403
  3. RHEUMATREX [Suspect]
     Dosage: 6 MG 1X PER 1 WK, ORAL
     Route: 048
     Dates: start: 20040424, end: 20041010
  4. PREDNISOLONE [Concomitant]
  5. GASTROM (ECABET MONOSODIUM) [Concomitant]
  6. ALFA D (ALFACLACIDOL) [Concomitant]
  7. ARTIST (CERVEDILOL) [Concomitant]
  8. ALDACTONE [Concomitant]
  9. LASIX [Concomitant]
  10. ZANTAC [Concomitant]
  11. SHIOSOL (SODIUM AUROTHIOMALATE) [Concomitant]

REACTIONS (10)
  - ANOREXIA [None]
  - ANURIA [None]
  - BLOOD BETA-D-GLUCAN INCREASED [None]
  - BLOOD PRESSURE DECREASED [None]
  - NAUSEA [None]
  - OXYGEN SATURATION DECREASED [None]
  - PANCYTOPENIA [None]
  - PNEUMOCYSTIS CARINII PNEUMONIA [None]
  - SEPTIC SHOCK [None]
  - STOMATITIS [None]
